FAERS Safety Report 12480339 (Version 1)
Quarter: 2016Q2

REPORT INFORMATION
  Report Type: Spontaneous
  Country: GB (occurrence: GB)
  Receive Date: 20160620
  Receipt Date: 20160620
  Transmission Date: 20160815
  Serious: Yes (Disabling, Other)
  Sender: FDA-Public Use
  Company Number: GB-SUN PHARMACEUTICAL INDUSTRIES LTD-2016RR-118695

PATIENT
  Sex: Female

DRUGS (1)
  1. CIPROFLOXACIN. [Suspect]
     Active Substance: CIPROFLOXACIN
     Indication: LUNG INFECTION
     Dosage: UNK
     Route: 065

REACTIONS (15)
  - General physical health deterioration [Unknown]
  - Asthenia [Unknown]
  - Bone disorder [Unknown]
  - Paraesthesia [Unknown]
  - Impaired work ability [Unknown]
  - Burning sensation [Unknown]
  - Pain [Unknown]
  - Groin pain [Unknown]
  - Neuropathy peripheral [Unknown]
  - Visual impairment [Unknown]
  - Myalgia [Unknown]
  - Muscle disorder [Unknown]
  - Fatigue [Unknown]
  - Hypoaesthesia [Unknown]
  - Arthropathy [Unknown]
